FAERS Safety Report 9271720 (Version 2)
Quarter: 2013Q4

REPORT INFORMATION
  Report Type: Report from Study
  Country: US (occurrence: US)
  Receive Date: 20130506
  Receipt Date: 20131022
  Transmission Date: 20140711
  Serious: Yes (Hospitalization)
  Sender: FDA-Public Use
  Company Number: US-BRISTOL-MYERS SQUIBB COMPANY-18749317

PATIENT
  Age: 64 Year
  Sex: Female
  Weight: 47.62 kg

DRUGS (16)
  1. SENNOSIDE [Concomitant]
  2. DOCUSATE SODIUM [Concomitant]
     Dosage: 8-6-50MG,1-2 TABS ONCE OR TWICE DAILY
     Dates: start: 20130204
  3. HYDROCODONE + ACETAMINOPHEN [Concomitant]
     Dosage: 1 DF = 10-325 MG,Q 4HOURS, PRN
     Dates: start: 20130121
  4. PRAVASTATIN SODIUM [Concomitant]
     Dosage: AT BED TIME
  5. OMEPRAZOLE [Concomitant]
  6. PROCHLORPERAZINE [Concomitant]
     Dates: start: 20130204, end: 20130329
  7. METOCLOPRAMIDE [Concomitant]
     Dates: start: 20130318
  8. CLONAZEPAM [Concomitant]
     Dosage: 2 - 3 TIMES A DAY
     Dates: start: 20130318
  9. OXYCODONE HCL [Concomitant]
     Dates: start: 20130311
  10. OXYCODONE [Concomitant]
     Dosage: Q3-4 HRS
     Dates: start: 20130311
  11. MORPHINE SULFATE [Concomitant]
     Route: 048
  12. NORCO [Concomitant]
  13. IPILIMUMAB [Suspect]
     Indication: PANCREATIC CARCINOMA
     Dosage: LAST DOSE:18MAR2013
     Route: 042
     Dates: start: 20130214
  14. GEMCITABINE [Suspect]
     Indication: PANCREATIC CARCINOMA
     Dosage: LAST DOSE:18MAR2013
     Dates: start: 20130214
  15. ONDANSETRON [Concomitant]
     Dosage: TAB
     Dates: start: 20130214
  16. TRIAMCINOLONE ACETONIDE [Concomitant]
     Route: 061
     Dates: start: 20130211

REACTIONS (4)
  - Diarrhoea [Recovering/Resolving]
  - Vomiting [Recovering/Resolving]
  - Dehydration [Recovering/Resolving]
  - Hypokalaemia [Unknown]
